FAERS Safety Report 20729384 (Version 1)
Quarter: 2022Q2

REPORT INFORMATION
  Report Type: Spontaneous
  Country: US (occurrence: None)
  Receive Date: 20220419
  Receipt Date: 20220419
  Transmission Date: 20220721
  Serious: Yes (Other)
  Sender: FDA-Public Use
  Company Number: None

PATIENT

DRUGS (6)
  1. MAG-AL PLUS [Suspect]
     Active Substance: ALUMINUM HYDROXIDE\DIMETHICONE\MAGNESIUM HYDROXIDE
  2. SUCRALFATE [Concomitant]
     Active Substance: SUCRALFATE
  3. SENNA SYRUP [Concomitant]
     Active Substance: SENNOSIDES
  4. LACTULOSE [Concomitant]
     Active Substance: LACTULOSE
  5. CHLORHEXIDINE GLUCONATE [Concomitant]
     Active Substance: CHLORHEXIDINE GLUCONATE
  6. ACETAMINOPHEN [Concomitant]
     Active Substance: ACETAMINOPHEN

REACTIONS (2)
  - Incorrect route of product administration [None]
  - Product label confusion [None]

NARRATIVE: CASE EVENT DATE: 20220303
